FAERS Safety Report 15472589 (Version 6)
Quarter: 2019Q1

REPORT INFORMATION
  Report Type: Spontaneous
  Country: PT (occurrence: PT)
  Receive Date: 20181008
  Receipt Date: 20190208
  Transmission Date: 20190417
  Serious: Yes (Hospitalization, Other)
  Sender: FDA-Public Use
  Company Number: PT-AUROBINDO-AUR-APL-2018-048710

PATIENT
  Age: 48 Year
  Sex: Female

DRUGS (5)
  1. PREDNISOLONE. [Concomitant]
     Active Substance: PREDNISOLONE
     Indication: PRODUCT USED FOR UNKNOWN INDICATION
     Dosage: 2MG/KG/DAY
     Route: 065
  2. ARIPIPRAZOLE. [Suspect]
     Active Substance: ARIPIPRAZOLE
     Indication: DEPRESSIVE SYMPTOM
     Dosage: 10 MILLIGRAM, DAILY
     Route: 065
  3. BROMAZEPAM [Concomitant]
     Active Substance: BROMAZEPAM
     Indication: DEPRESSION
     Dosage: 6 MILLIGRAM
     Route: 065
  4. BROMAZEPAM [Suspect]
     Active Substance: BROMAZEPAM
     Indication: DEPRESSION
     Dosage: 18 MILLIGRAM, ONCE A DAY, 6 MG, TID
     Route: 065
  5. CLOMIPRAMINE [Suspect]
     Active Substance: CLOMIPRAMINE
     Indication: DEPRESSION
     Dosage: 75 MILLIGRAM, DAILY
     Route: 065

REACTIONS (10)
  - Hyperbilirubinaemia [Recovered/Resolved]
  - Fatigue [Recovered/Resolved]
  - Haemolytic anaemia [Recovered/Resolved]
  - Tachycardia [Recovered/Resolved]
  - Chromaturia [Recovered/Resolved]
  - Leukocytosis [Recovered/Resolved]
  - Weight decreased [Recovered/Resolved]
  - Thrombocytosis [Recovered/Resolved]
  - Anaemia macrocytic [Recovered/Resolved]
  - Pallor [Recovered/Resolved]
